FAERS Safety Report 15006359 (Version 2)
Quarter: 2018Q2

REPORT INFORMATION
  Report Type: Report from Study
  Country: US (occurrence: US)
  Receive Date: 20180613
  Receipt Date: 20180619
  Transmission Date: 20180711
  Serious: Yes (Hospitalization, Other)
  Sender: FDA-Public Use
  Company Number: US-GILEAD-2018-0339885

PATIENT
  Age: 69 Year
  Sex: Female

DRUGS (3)
  1. AMBRISENTAN [Suspect]
     Active Substance: AMBRISENTAN
     Indication: PRODUCT USED FOR UNKNOWN INDICATION
     Dosage: 10 MG, QD
     Route: 065
     Dates: start: 20110511
  2. ELIQUIS [Concomitant]
     Active Substance: APIXABAN
  3. UPTRAVI [Concomitant]
     Active Substance: SELEXIPAG

REACTIONS (4)
  - Nausea [Not Recovered/Not Resolved]
  - Hypotension [Unknown]
  - Hypotension [Not Recovered/Not Resolved]
  - Syncope [Unknown]
